FAERS Safety Report 5419914-9 (Version None)
Quarter: 2007Q3

REPORT INFORMATION
  Report Type: 
  Country: None (occurrence: None)
  Receive Date: 20070820
  Receipt Date: 20070808
  Transmission Date: 20080115
  Serious: Yes (Other)
  Sender: FDA-Public Use
  Company Number: FR-PFIZER INC-2007016873

PATIENT
  Sex: Male
  Weight: 98 kg

DRUGS (24)
  1. NEURONTIN [Suspect]
     Indication: NEURALGIA
     Dates: start: 20041101, end: 20060701
  2. LYRICA [Suspect]
     Indication: NEURALGIA
  3. METFORMIN HCL [Concomitant]
  4. ACTOS [Concomitant]
  5. PREVISCAN [Concomitant]
  6. KARDEGIC [Concomitant]
  7. CARDENSIEL [Concomitant]
  8. COVERSYL [Concomitant]
  9. EFFEXOR [Concomitant]
  10. NEXIUM [Concomitant]
  11. TRAMADOL HCL [Concomitant]
  12. CLONAZEPAM [Concomitant]
  13. TRAMADOL HCL [Concomitant]
  14. CLONAZEPAM [Concomitant]
  15. PRISTINAMYCIN [Concomitant]
     Dates: start: 20060701, end: 20070101
  16. AMOXICILLIN + CLAVULANATE POTASSIUM [Concomitant]
     Dates: start: 20060801, end: 20070101
  17. METFORMIN HCL [Concomitant]
  18. FLUINDIONE [Concomitant]
  19. ASPIRIN [Concomitant]
  20. BISOPROLOL [Concomitant]
     Dates: start: 20040101, end: 20070101
  21. PERINDOPRIL ERBUMINE [Concomitant]
  22. VENLAFAXINE HCL [Concomitant]
  23. ESOMEPRAZOLE MAGNESIUM [Concomitant]
  24. PANTOPRAZOLE SODIUM [Concomitant]
     Dates: start: 20060501, end: 20060601

REACTIONS (5)
  - DRY EYE [None]
  - EYE PAIN [None]
  - LACRIMATION INCREASED [None]
  - NEUROPATHY PERIPHERAL [None]
  - VISUAL ACUITY REDUCED [None]
